FAERS Safety Report 6793364-5 (Version None)
Quarter: 2010Q2

REPORT INFORMATION
  Report Type: 
  Country: None (occurrence: None)
  Receive Date: 20100624
  Receipt Date: 20100203
  Transmission Date: 20101027
  Serious: Yes (Death)
  Sender: FDA-Public Use
  Company Number: US-MYLANLABS-2009S1022172

PATIENT
  Age: 42 Year
  Sex: Female

DRUGS (4)
  1. CLOZAPINE [Suspect]
     Indication: SCHIZOPHRENIA
     Route: 048
     Dates: start: 20071101, end: 20091101
  2. METFORMIN HCL [Concomitant]
  3. ADVAIR DISKUS 100/50 [Concomitant]
  4. ZOCOR [Concomitant]

REACTIONS (1)
  - SUDDEN DEATH [None]
